FAERS Safety Report 4558898-2 (Version None)
Quarter: 2005Q1

REPORT INFORMATION
  Report Type: 
  Country: None (occurrence: None)
  Receive Date: 20050121
  Receipt Date: 20030605
  Transmission Date: 20050727
  Serious: Yes (Hospitalization, Other)
  Sender: FDA-Public Use
  Company Number: US-MERCK-0306USA00769

PATIENT
  Age: 52 Year
  Sex: Female
  Weight: 112 kg

DRUGS (2)
  1. VIOXX [Suspect]
     Route: 048
  2. EFFEXOR XR [Concomitant]
     Route: 065

REACTIONS (48)
  - ABDOMINAL PAIN [None]
  - ABDOMINAL PAIN LOWER [None]
  - ABSCESS [None]
  - ABSCESS INTESTINAL [None]
  - ACUTE ABDOMEN [None]
  - ADVERSE EVENT [None]
  - ANGINA PECTORIS [None]
  - ARTHRALGIA [None]
  - ATELECTASIS [None]
  - BLOOD CHOLESTEROL INCREASED [None]
  - BLOOD GLUCOSE DECREASED [None]
  - BLOOD PRESSURE INCREASED [None]
  - BRONCHITIS [None]
  - CARDIAC FAILURE CONGESTIVE [None]
  - CAROTID ARTERY STENOSIS [None]
  - CEREBRAL ARTERY STENOSIS [None]
  - CEREBRAL VENTRICLE DILATATION [None]
  - CERVICAL CYST [None]
  - CHEST PAIN [None]
  - COLITIS [None]
  - CONVULSION [None]
  - DEMYELINATION [None]
  - DIVERTICULAR PERFORATION [None]
  - DIVERTICULITIS [None]
  - DIVERTICULUM INTESTINAL [None]
  - DIZZINESS [None]
  - DYSPNOEA [None]
  - FACIAL PALSY [None]
  - GASTROOESOPHAGEAL REFLUX DISEASE [None]
  - HAEMORRHOIDS [None]
  - HAND FRACTURE [None]
  - HEADACHE [None]
  - HYPERTENSION [None]
  - HYPOAESTHESIA [None]
  - HYPOKALAEMIA [None]
  - LEUKOCYTOSIS [None]
  - NAUSEA [None]
  - OVARIAN CYST [None]
  - PAIN IN EXTREMITY [None]
  - PALPITATIONS [None]
  - PNEUMONITIS [None]
  - PYREXIA [None]
  - ROTATOR CUFF SYNDROME [None]
  - TRANSIENT ISCHAEMIC ATTACK [None]
  - TRIGGER FINGER [None]
  - TUBO-OVARIAN ABSCESS [None]
  - UMBILICAL HERNIA [None]
  - VOMITING [None]
